FAERS Safety Report 5549535-9 (Version None)
Quarter: 2007Q4

REPORT INFORMATION
  Report Type: 
  Country: None (occurrence: None)
  Receive Date: 20071212
  Receipt Date: 20071130
  Transmission Date: 20080405
  Serious: Yes (Hospitalization, Other)
  Sender: FDA-Public Use
  Company Number: PHMT2007CA02363

PATIENT
  Age: 73 Year
  Sex: Female

DRUGS (2)
  1. SANDOSTATIN LAR [Suspect]
     Indication: IMPAIRED GASTRIC EMPTYING
     Dosage: 30 MG EVERY 4 WEEKS
     Route: 030
     Dates: start: 20060524, end: 20071011
  2. SANDOSTATIN SUBCUTANEOUS [Suspect]
     Dosage: UNK, TID
     Route: 058
     Dates: end: 20071101

REACTIONS (6)
  - BILIARY DRAINAGE [None]
  - DEHYDRATION [None]
  - GASTROSTOMY [None]
  - INFECTION [None]
  - PAIN [None]
  - VOMITING [None]
